FAERS Safety Report 17465259 (Version 1)
Quarter: 2020Q1

REPORT INFORMATION
  Report Type: Report from Study
  Country: JP (occurrence: JP)
  Receive Date: 20200226
  Receipt Date: 20200226
  Transmission Date: 20200409
  Serious: No
  Sender: FDA-Public Use
  Company Number: JP-ALLERGAN-1952715US

PATIENT
  Age: 32 Year
  Sex: Female
  Weight: 64.5 kg

DRUGS (22)
  1. FLAVOXATE HYDROCHLORIDE. [Concomitant]
     Active Substance: FLAVOXATE HYDROCHLORIDE
  2. LORAZEPAM. [Suspect]
     Active Substance: LORAZEPAM
     Dosage: 1.5 MG
     Route: 048
     Dates: start: 20181213, end: 20190111
  3. ARIPIPRAZOLE. [Concomitant]
     Active Substance: ARIPIPRAZOLE
     Dosage: UNK
     Dates: end: 20181205
  4. SODIUM PICOSULFATE [Concomitant]
     Active Substance: SODIUM PICOSULFATE
     Dosage: UNK
     Dates: start: 20190110
  5. OLOPATADINE HYDROCHLORIDE. [Concomitant]
     Active Substance: OLOPATADINE HYDROCHLORIDE
     Dosage: UNK
     Dates: start: 20181229
  6. VALERIN                            /00228502/ [Suspect]
     Active Substance: VALPROATE SODIUM
     Dosage: 600 MG
     Route: 048
     Dates: start: 20190118
  7. NITRAZEPAM [Concomitant]
     Active Substance: NITRAZEPAM
     Dosage: UNK
  8. ASENAPINE MALEATE UNK [Suspect]
     Active Substance: ASENAPINE MALEATE
     Dosage: 7.5 MG, BID
     Route: 060
     Dates: start: 20190213, end: 20190513
  9. VALERIN                            /00228502/ [Suspect]
     Active Substance: VALPROATE SODIUM
     Indication: SCHIZOPHRENIA
     Dosage: 700 MG
     Route: 048
     Dates: end: 20190117
  10. EFFEXOR [Suspect]
     Active Substance: VENLAFAXINE HYDROCHLORIDE
     Indication: SCHIZOPHRENIA
     Dosage: 75 MG
     Route: 048
     Dates: end: 20190513
  11. FLUNITRAZEPAM [Concomitant]
     Active Substance: FLUNITRAZEPAM
     Dosage: UNK
  12. CLONAZEPAM. [Concomitant]
     Active Substance: CLONAZEPAM
     Dosage: UNK
     Dates: start: 20190529
  13. ASENAPINE MALEATE UNK [Suspect]
     Active Substance: ASENAPINE MALEATE
     Indication: SCHIZOPHRENIA
     Dosage: 5 MG, BID
     Route: 060
     Dates: start: 20181122, end: 20190212
  14. LONASEN [Suspect]
     Active Substance: BLONANSERIN
     Indication: SCHIZOPHRENIA
     Dosage: 4 MG
     Route: 048
     Dates: end: 20181101
  15. BIPERIDEN HYDROCHLORIDE [Concomitant]
     Active Substance: BIPERIDEN HYDROCHLORIDE
     Dosage: UNK
  16. ASENAPINE MALEATE UNK [Suspect]
     Active Substance: ASENAPINE MALEATE
     Dosage: 10 MG, BID
     Route: 060
     Dates: start: 20190514
  17. LONASEN [Suspect]
     Active Substance: BLONANSERIN
     Dosage: 8 MG
     Route: 048
     Dates: start: 20181102, end: 20181114
  18. LONASEN [Suspect]
     Active Substance: BLONANSERIN
     Dosage: 16 MG
     Route: 048
     Dates: start: 20181115
  19. MAGNESIUM OXIDE. [Concomitant]
     Active Substance: MAGNESIUM OXIDE
     Dosage: UNK
     Dates: start: 20190110
  20. LORAZEPAM. [Suspect]
     Active Substance: LORAZEPAM
     Indication: SCHIZOPHRENIA
     Dosage: 2.5 MG
     Route: 048
     Dates: end: 20181212
  21. BLONANSERIN [Concomitant]
     Active Substance: BLONANSERIN
     Dosage: UNK
  22. FEXOFENADINE HYDROCHLORIDE. [Concomitant]
     Active Substance: FEXOFENADINE HYDROCHLORIDE
     Dosage: UNK
     Dates: end: 20181229

REACTIONS (4)
  - Schizophrenia [Recovering/Resolving]
  - Irritability [Recovering/Resolving]
  - Constipation [Recovering/Resolving]
  - Pruritus [Recovering/Resolving]

NARRATIVE: CASE EVENT DATE: 20181227
